FAERS Safety Report 7162297-7 (Version None)
Quarter: 2010Q4

REPORT INFORMATION
  Report Type: 
  Country: None (occurrence: None)
  Receive Date: 20101215
  Receipt Date: 20101206
  Transmission Date: 20110411
  Serious: Yes (Hospitalization)
  Sender: FDA-Public Use
  Company Number: US-SANOFI-AVENTIS-2010SA066159

PATIENT
  Age: 37 Year
  Sex: Female
  Weight: 36 kg

DRUGS (12)
  1. MULTAQ [Suspect]
     Indication: ATRIAL FIBRILLATION
     Route: 048
     Dates: start: 20100926, end: 20101024
  2. AMBIEN [Concomitant]
     Dosage: 1/2 A TABLET PRN
     Route: 048
  3. ASPIRIN [Concomitant]
     Route: 048
  4. DIGOXIN [Concomitant]
     Route: 048
  5. ENALAPRIL [Concomitant]
  6. LASIX [Concomitant]
  7. OXYGEN [Concomitant]
  8. ORAL CONTRACEPTIVE NOS [Concomitant]
  9. SYNTHROID [Concomitant]
     Route: 048
  10. SYNTHROID [Concomitant]
     Route: 048
  11. COUMADIN [Concomitant]
  12. DILTIAZEM [Concomitant]

REACTIONS (11)
  - ATRIAL TACHYCARDIA [None]
  - CARDIAC FAILURE [None]
  - CARDIOMEGALY [None]
  - DECREASED APPETITE [None]
  - DYSPNOEA [None]
  - DYSPNOEA EXERTIONAL [None]
  - NAUSEA [None]
  - OEDEMA PERIPHERAL [None]
  - POOR QUALITY SLEEP [None]
  - WAIST CIRCUMFERENCE INCREASED [None]
  - WEIGHT INCREASED [None]
